FAERS Safety Report 13021199 (Version 1)
Quarter: 2016Q4

REPORT INFORMATION
  Report Type: Spontaneous
  Country: VE (occurrence: VE)
  Receive Date: 20161213
  Receipt Date: 20161213
  Transmission Date: 20170207
  Serious: Yes (Other)
  Sender: FDA-Public Use
  Company Number: VE-ROCHE-1865473

PATIENT
  Sex: Female

DRUGS (9)
  1. MIFLONIDE [Suspect]
     Active Substance: BUDESONIDE
     Dosage: 1 DF, QD (ONLY AT NIGHT)
     Route: 055
  2. MIFLONIDE [Suspect]
     Active Substance: BUDESONIDE
     Indication: CHRONIC OBSTRUCTIVE PULMONARY DISEASE
     Dosage: (IN THE MORNING AND AT NIGHT)
     Route: 055
  3. XOLAIR [Suspect]
     Active Substance: OMALIZUMAB
     Indication: ASTHMA
     Dosage: (2 TIMES A MONTHS, 2 AND 3 EVERY 18, 21 DAYS)
     Route: 058
  4. FORADIL [Suspect]
     Active Substance: FORMOTEROL FUMARATE
     Dosage: 1 DF, QD (ONLY AT NIGHT)
     Route: 055
  5. BUDECORT [Suspect]
     Active Substance: BUDESONIDE
     Indication: ASTHMA
     Dosage: 20 DF, QD
     Route: 065
  6. SEEBRI [Suspect]
     Active Substance: GLYCOPYRRONIUM
     Indication: CHRONIC OBSTRUCTIVE PULMONARY DISEASE
     Route: 055
  7. BERODUAL [Suspect]
     Active Substance: FENOTEROL HYDROBROMIDE\IPRATROPIUM BROMIDE
     Indication: ASTHMA
     Dosage: 20 DF, QD
     Route: 065
  8. OLMESARTAN [Concomitant]
     Active Substance: OLMESARTAN
     Indication: PRODUCT USED FOR UNKNOWN INDICATION
     Route: 065
  9. FORADIL [Suspect]
     Active Substance: FORMOTEROL FUMARATE
     Indication: CHRONIC OBSTRUCTIVE PULMONARY DISEASE
     Dosage: (IN THE MORNING AND AT NIGHT)
     Route: 055

REACTIONS (15)
  - Pain [Unknown]
  - Asphyxia [Unknown]
  - Dyspepsia [Unknown]
  - Wheezing [Unknown]
  - Asthmatic crisis [Unknown]
  - Discomfort [Unknown]
  - Malaise [Recovered/Resolved]
  - Choking [Unknown]
  - Hypertension [Unknown]
  - Drug dependence [Unknown]
  - Influenza [Unknown]
  - Pain in extremity [Recovered/Resolved]
  - Gastric disorder [Unknown]
  - Diabetes mellitus [Unknown]
  - Fatigue [Recovered/Resolved]
